FAERS Safety Report 8571618-X (Version None)
Quarter: 2012Q3

REPORT INFORMATION
  Report Type: 
  Country: None (occurrence: None)
  Receive Date: 20120806
  Receipt Date: 20120801
  Transmission Date: 20120928
  Serious: Yes (Death, Hospitalization, Other)
  Sender: FDA-Public Use
  Company Number: PHEH2012US015031

PATIENT
  Sex: Male
  Weight: 75 kg

DRUGS (1)
  1. AFINITOR [Suspect]

REACTIONS (5)
  - VOMITING [None]
  - DEATH [None]
  - METASTATIC NEOPLASM [None]
  - DEHYDRATION [None]
  - NAUSEA [None]
